FAERS Safety Report 15843205 (Version 1)
Quarter: 2019Q1

REPORT INFORMATION
  Report Type: Report from Study
  Country: DE (occurrence: DE)
  Receive Date: 20190118
  Receipt Date: 20190118
  Transmission Date: 20190417
  Serious: Yes (Disabling)
  Sender: FDA-Public Use
  Company Number: DE-PFIZER INC-2018534126

PATIENT
  Sex: Male
  Weight: 83.5 kg

DRUGS (6)
  1. NOXAFIL [Concomitant]
     Active Substance: POSACONAZOLE
     Dosage: UNK
     Dates: start: 20181107
  2. PANTOPRAZOL [PANTOPRAZOLE SODIUM SESQUIHYDRATE] [Concomitant]
     Dosage: UNK
     Dates: start: 20181107
  3. CELLCEPT [Concomitant]
     Active Substance: MYCOPHENOLATE MOFETIL\MYCOPHENOLATE MOFETIL HYDROCHLORIDE
     Dosage: UNK
     Dates: start: 20181107
  4. SANDIMMUN [Concomitant]
     Active Substance: CYCLOSPORINE
     Dosage: UNK
     Dates: start: 20181107
  5. HEPARIN SODIUM. [Suspect]
     Active Substance: HEPARIN SODIUM
  6. METHYLPREDNISOLONE SODIUM SUCCINATE. [Suspect]
     Active Substance: METHYLPREDNISOLONE SODIUM SUCCINATE
     Indication: ACUTE GRAFT VERSUS HOST DISEASE
     Dosage: UNK
     Route: 042
     Dates: start: 20181106

REACTIONS (1)
  - Extradural haematoma [Recovered/Resolved with Sequelae]

NARRATIVE: CASE EVENT DATE: 20181125
